FAERS Safety Report 4440842-X (Version None)
Quarter: 2004Q3

REPORT INFORMATION
  Report Type: 
  Country: None (occurrence: None)
  Receive Date: 20040903
  Receipt Date: 20040823
  Transmission Date: 20050211
  Serious: Yes (Other)
  Sender: FDA-Public Use
  Company Number: 001#3#2004-01778

PATIENT
  Age: 52 Year
  Sex: Female

DRUGS (2)
  1. PAROXAT [Suspect]
     Indication: PANIC ATTACK
     Route: 048
     Dates: start: 20011107, end: 20011130
  2. CYCLO-PROGYNOVA [Concomitant]
     Route: 048

REACTIONS (4)
  - AGITATION [None]
  - DEPRESSION [None]
  - SLEEP DISORDER [None]
  - SUICIDAL IDEATION [None]
